FAERS Safety Report 14808817 (Version 1)
Quarter: 2018Q2

REPORT INFORMATION
  Report Type: Spontaneous
  Country: DE (occurrence: DE)
  Receive Date: 20180425
  Receipt Date: 20180425
  Transmission Date: 20180711
  Serious: Yes (Hospitalization, Other)
  Sender: FDA-Public Use
  Company Number: PHHY2018DE058542

PATIENT
  Age: 55 Year
  Sex: Male

DRUGS (11)
  1. ARTICAINE [Concomitant]
     Active Substance: ARTICAINE
     Indication: LOCAL ANAESTHESIA
     Route: 065
  2. ELVITEGRAVIR [Concomitant]
     Active Substance: ELVITEGRAVIR
     Indication: PRODUCT USED FOR UNKNOWN INDICATION
     Route: 065
  3. CLINDAMYCIN. [Suspect]
     Active Substance: CLINDAMYCIN
     Indication: DENTAL OPERATION
  4. AMOXICILLIN. [Suspect]
     Active Substance: AMOXICILLIN
     Indication: OROPHARYNGEAL PAIN
     Route: 065
  5. EPINEPHRINE. [Concomitant]
     Active Substance: EPINEPHRINE
     Indication: LOCAL ANAESTHESIA
     Route: 065
  6. TENOFOVIR ALAFENAMIDE FUMARATE [Concomitant]
     Active Substance: TENOFOVIR ALAFENAMIDE FUMARATE
     Indication: PRODUCT USED FOR UNKNOWN INDICATION
     Route: 065
  7. PRIMAQUIN (PRIMAQUINE PHOSPHATE) [Suspect]
     Active Substance: PRIMAQUINE PHOSPHATE
     Indication: PNEUMOCYSTIS JIROVECII PNEUMONIA
     Dosage: UNK
     Route: 065
  8. EMTRICITABINE [Concomitant]
     Active Substance: EMTRICITABINE
     Indication: PRODUCT USED FOR UNKNOWN INDICATION
     Route: 065
  9. CLINDAMYCIN. [Suspect]
     Active Substance: CLINDAMYCIN
     Indication: PNEUMOCYSTIS JIROVECII PNEUMONIA
     Dosage: UNK
     Route: 065
  10. PRIMAQUIN (PRIMAQUINE PHOSPHATE) [Suspect]
     Active Substance: PRIMAQUINE PHOSPHATE
     Indication: PNEUMOCYSTIS JIROVECII INFECTION
  11. COBICISTAT [Concomitant]
     Active Substance: COBICISTAT
     Indication: PRODUCT USED FOR UNKNOWN INDICATION
     Route: 065

REACTIONS (16)
  - Rash generalised [Unknown]
  - Tachycardia [Unknown]
  - Dyspnoea [Unknown]
  - Anxiety [Unknown]
  - Epigastric discomfort [Unknown]
  - Syncope [Unknown]
  - Hypersensitivity [Unknown]
  - Vomiting [Unknown]
  - Fatigue [Unknown]
  - Pruritus [Unknown]
  - Nausea [Unknown]
  - Cardiovascular disorder [Unknown]
  - Rash maculo-papular [Unknown]
  - Swelling face [Unknown]
  - Generalised erythema [Unknown]
  - Anaphylactic reaction [Unknown]
